FAERS Safety Report 16125292 (Version 1)
Quarter: 2019Q1

REPORT INFORMATION
  Report Type: Spontaneous
  Country: US (occurrence: US)
  Receive Date: 20190327
  Receipt Date: 20190327
  Transmission Date: 20190418
  Serious: No
  Sender: FDA-Public Use
  Company Number: US-VERASTEM-2018-00106

PATIENT

DRUGS (3)
  1. COPIKTRA [Suspect]
     Active Substance: DUVELISIB
     Indication: CHRONIC LYMPHOCYTIC LEUKAEMIA
     Dosage: 25 MG, BID
     Route: 048
     Dates: start: 20181128
  2. COPIKTRA [Suspect]
     Active Substance: DUVELISIB
     Indication: NON-HODGKIN^S LYMPHOMA
  3. COPIKTRA [Suspect]
     Active Substance: DUVELISIB
     Indication: LYMPHOMA

REACTIONS (1)
  - Urinary tract infection [Unknown]

NARRATIVE: CASE EVENT DATE: 20181221
